FAERS Safety Report 12758757 (Version 1)
Quarter: 2016Q3

REPORT INFORMATION
  Report Type: Spontaneous
  Country: US (occurrence: US)
  Receive Date: 20160916
  Receipt Date: 20160916
  Transmission Date: 20161109
  Serious: No
  Sender: FDA-Public Use
  Company Number: None

PATIENT
  Sex: Male

DRUGS (1)
  1. SUTENT [Suspect]
     Active Substance: SUNITINIB MALATE
     Indication: RENAL CANCER
     Dosage: 50MG DAILY FOR 2 WEEKS, THEN 1 ORAL
     Route: 048
     Dates: start: 20160317

REACTIONS (8)
  - Dysgeusia [None]
  - Asthenia [None]
  - Glossodynia [None]
  - Tongue discomfort [None]
  - Dry skin [None]
  - Reproductive tract hypoplasia, male [None]
  - Skin irritation [None]
  - Malaise [None]
